FAERS Safety Report 6299178-7 (Version None)
Quarter: 2009Q3

REPORT INFORMATION
  Report Type: 
  Country: None (occurrence: None)
  Receive Date: 20090804
  Receipt Date: 20090724
  Transmission Date: 20100115
  Serious: Yes (Hospitalization)
  Sender: FDA-Public Use
  Company Number: GXKR2009TR08488

PATIENT
  Age: 12 Year
  Sex: Male
  Weight: 53 kg

DRUGS (1)
  1. ACETAMINOPHEN [Suspect]
     Indication: PAIN
     Dosage: 500 MG/DAY, ORAL
     Route: 048

REACTIONS (3)
  - ABDOMINAL PAIN [None]
  - RENAL FAILURE ACUTE [None]
  - VOMITING [None]
